FAERS Safety Report 25554446 (Version 1)
Quarter: 2025Q3

REPORT INFORMATION
  Report Type: Spontaneous
  Country: US (occurrence: None)
  Receive Date: 20250714
  Receipt Date: 20250714
  Transmission Date: 20251020
  Serious: Yes (Other)
  Sender: FDA-CTU
  Company Number: None

PATIENT
  Age: 47 Year
  Sex: Male
  Weight: 72 kg

DRUGS (2)
  1. MECLOFENOXATE [Suspect]
     Active Substance: MECLOFENOXATE
  2. FONTURACETAM [Suspect]
     Active Substance: FONTURACETAM

REACTIONS (11)
  - Product odour abnormal [None]
  - Dizziness [None]
  - Nausea [None]
  - Sedation [None]
  - Headache [None]
  - Chest discomfort [None]
  - Product quality issue [None]
  - Product formulation issue [None]
  - Manufacturing process control procedure not performed [None]
  - Product complaint [None]
  - Product advertising issue [None]

NARRATIVE: CASE EVENT DATE: 20250709
